FAERS Safety Report 19194802 (Version 2)
Quarter: 2021Q3

REPORT INFORMATION
  Report Type: Spontaneous
  Country: FI (occurrence: FI)
  Receive Date: 20210429
  Receipt Date: 20210702
  Transmission Date: 20211014
  Serious: Yes (Other)
  Sender: FDA-Public Use
  Company Number: FI-GLAXOSMITHKLINE-FI2021090879

PATIENT
  Age: 14 Year
  Sex: Female

DRUGS (1)
  1. VENTOLINE [Suspect]
     Active Substance: ALBUTEROL
     Indication: PRODUCT USED FOR UNKNOWN INDICATION
     Dosage: 1 MG/ML
     Route: 055
     Dates: start: 20210421

REACTIONS (2)
  - Foreign body aspiration [Unknown]
  - Product complaint [Unknown]

NARRATIVE: CASE EVENT DATE: 20210421
